FAERS Safety Report 4295466-4 (Version None)
Quarter: 2004Q1

REPORT INFORMATION
  Report Type: 
  Country: None (occurrence: None)
  Receive Date: 20040212
  Receipt Date: 20030205
  Transmission Date: 20041129
  Serious: Yes (Life-Threatening, Hospitalization)
  Sender: FDA-Public Use
  Company Number: 04-0010-PO

PATIENT
  Sex: Female
  Weight: 60 kg

DRUGS (8)
  1. PONSTAN (MEFENAMIC ACID) /PONSTEL [Suspect]
     Dosage: 18G, ONCE, PO
     Route: 048
  2. LITHIUM CARBONATE [Suspect]
     Dosage: 4000MG, ONCE, PO
     Route: 048
  3. FLUVOXAMINE MALEATE [Suspect]
     Dosage: 800MG, ONCE, PO
     Route: 048
  4. CLORAZEPATE DIPOTASSIUM [Suspect]
     Dosage: 250MG, ONCE, PO
     Route: 048
  5. CLOTIAPINE [Suspect]
     Dosage: 4000MG, ONCE, PO
     Route: 048
  6. FLURAZEPAM HCL [Suspect]
     Dosage: 1800MG, ONCE, PO
     Route: 048
  7. TRAMADOL HYDROCHLORIDE [Suspect]
     Dosage: 450MG, ONCE, PO
     Route: 048
  8. PROPRANOLOL HYDROCHLORIDE [Suspect]
     Dosage: 300MG, ONCE, PO
     Route: 048

REACTIONS (4)
  - COMA [None]
  - RENAL FAILURE ACUTE [None]
  - SEROTONIN SYNDROME [None]
  - SUICIDE ATTEMPT [None]
